FAERS Safety Report 8796830 (Version 2)
Quarter: 2013Q4

REPORT INFORMATION
  Report Type: Spontaneous
  Country: US (occurrence: US)
  Receive Date: 20120919
  Receipt Date: 20131031
  Transmission Date: 20140711
  Serious: Yes (Other)
  Sender: FDA-Public Use
  Company Number: US-009507513-1209USA003385

PATIENT
  Sex: Female

DRUGS (6)
  1. ISENTRESS [Suspect]
     Dosage: 400 MG, QD
     Route: 048
  2. WELLBUTRIN [Suspect]
     Dosage: 300 MG, QD
     Route: 048
  3. WELLBUTRIN [Suspect]
     Dosage: 150 MG, QD
     Route: 048
  4. DOC TRAZODONE [Suspect]
     Dosage: 100 MG, QD
     Route: 048
  5. REYATAZ [Suspect]
     Dosage: 200 MG, QD
     Route: 048
  6. TRUVADA [Suspect]
     Dosage: UNK DF, UNK
     Route: 048

REACTIONS (3)
  - Abortion spontaneous [Unknown]
  - Maternal exposure during pregnancy [Recovered/Resolved]
  - Pregnancy [Recovered/Resolved]
